FAERS Safety Report 14543123 (Version 1)
Quarter: 2018Q1

REPORT INFORMATION
  Report Type: Report from Study
  Country: US (occurrence: US)
  Receive Date: 20180216
  Receipt Date: 20180216
  Transmission Date: 20180509
  Serious: Yes (Other)
  Sender: FDA-Public Use
  Company Number: US-GILEAD-2018-0320966

PATIENT
  Sex: Male

DRUGS (14)
  1. VITAMIN D3 [Concomitant]
     Active Substance: CHOLECALCIFEROL
  2. COENZYME Q10 [Concomitant]
     Active Substance: UBIDECARENONE
  3. DONEPEZIL. [Concomitant]
     Active Substance: DONEPEZIL
  4. RANOLAZINE. [Suspect]
     Active Substance: RANOLAZINE
     Indication: PRODUCT USED FOR UNKNOWN INDICATION
     Route: 065
  5. TURMERIC                           /01079602/ [Concomitant]
     Active Substance: HERBALS\TURMERIC
  6. SAW PALMETTO                       /00833501/ [Concomitant]
     Active Substance: HERBALS\SAW PALMETTO
  7. VITAMIN B COMPLEX [Concomitant]
     Active Substance: CYANOCOBALAMIN\DEXPANTHENOL\NIACINAMIDE\PYRIDOXINE HYDROCHLORIDE\RIBOFLAVIN 5^-PHOSPHATE SODIUM\THIAMINE HYDROCHLORIDE\VITAMIN B COMPLEX
  8. GLUCOSAMINE + CHONDROITIN WITH MSM /05199601/ [Concomitant]
  9. CALCIUM CITRATE [Concomitant]
     Active Substance: CALCIUM CITRATE
  10. VITAMIN E                          /00110502/ [Concomitant]
  11. MAGNESIUM CITRATE. [Concomitant]
     Active Substance: MAGNESIUM CITRATE
  12. ZINC. [Concomitant]
     Active Substance: ZINC
  13. KRILL OIL [Concomitant]
     Active Substance: DIETARY SUPPLEMENT
  14. METFORMIN [Concomitant]
     Active Substance: METFORMIN HYDROCHLORIDE

REACTIONS (4)
  - Unevaluable event [Unknown]
  - Parkinson^s disease [Unknown]
  - Abdominal discomfort [Unknown]
  - Intentional dose omission [Unknown]
